FAERS Safety Report 9800454 (Version 1)
Quarter: 2014Q1

REPORT INFORMATION
  Report Type: Spontaneous
  Country: US (occurrence: US)
  Receive Date: 20140107
  Receipt Date: 20140107
  Transmission Date: 20141002
  Serious: No
  Sender: FDA-Public Use
  Company Number: US-009507513-1401USA001098

PATIENT
  Sex: Female

DRUGS (1)
  1. NEXPLANON [Suspect]
     Indication: CONTRACEPTION
     Dosage: DOSE/FREQUENCY AND ROUTE: 1 ROD FOR 3 YEARS, SUBDERMALLY IN THE RIGHT ARM.
     Route: 059
     Dates: start: 20131028

REACTIONS (2)
  - Headache [Unknown]
  - Menorrhagia [Not Recovered/Not Resolved]
